FAERS Safety Report 7480834-X (Version None)
Quarter: 2011Q2

REPORT INFORMATION
  Report Type: 
  Country: None (occurrence: None)
  Receive Date: 20110516
  Receipt Date: 20110506
  Transmission Date: 20111010
  Serious: Yes (Hospitalization)
  Sender: FDA-Public Use
  Company Number: FR-MILLENNIUM PHARMACEUTICALS, INC.-2011-01883

PATIENT

DRUGS (9)
  1. PLAVIX [Concomitant]
     Dosage: UNK
     Route: 065
     Dates: end: 20110326
  2. REVLIMID [Suspect]
     Indication: AMYLOIDOSIS
     Dosage: 25 MG, UNK
     Dates: end: 20110320
  3. FLUCONAZOLE [Concomitant]
     Route: 065
  4. VELCADE [Suspect]
     Indication: AMYLOIDOSIS
     Dosage: UNK
     Route: 042
     Dates: start: 20110201
  5. ASPEGIC 325 [Concomitant]
     Dosage: 100 MG, UNK
     Route: 065
     Dates: end: 20110325
  6. ATORVASTATIN CALCIUM [Concomitant]
     Dosage: UNK
     Route: 065
     Dates: end: 20110320
  7. BACTRIM [Concomitant]
     Route: 065
  8. ACYCLOVIR [Concomitant]
     Route: 065
  9. DEXAMETHASONE [Concomitant]
     Dosage: 20 MG, 1/WEEK
     Route: 065

REACTIONS (1)
  - CEREBELLAR INFARCTION [None]
